FAERS Safety Report 10050512 (Version 1)
Quarter: 2014Q2

REPORT INFORMATION
  Report Type: Spontaneous
  Country: US (occurrence: US)
  Receive Date: 20140401
  Receipt Date: 20140401
  Transmission Date: 20141212
  Serious: No
  Sender: FDA-Public Use
  Company Number: US-ASTRAZENECA-2013SE84543

PATIENT
  Age: 71 Year
  Sex: Male
  Weight: 88.5 kg

DRUGS (4)
  1. NEXIUM [Suspect]
     Indication: GASTROOESOPHAGEAL REFLUX DISEASE
     Route: 048
     Dates: start: 2001
  2. LISINOPRIL [Suspect]
     Indication: HYPERTENSION
     Route: 048
     Dates: start: 2003
  3. SIMVASTATIN [Concomitant]
     Indication: RENAL DISORDER
     Route: 048
  4. OTHER MEDICAL PRODUCTS [Concomitant]

REACTIONS (2)
  - Renal disorder [Unknown]
  - Diarrhoea [Not Recovered/Not Resolved]
